FAERS Safety Report 23945198 (Version 1)
Quarter: 2024Q2

REPORT INFORMATION
  Report Type: Spontaneous
  Country: CN (occurrence: CN)
  Receive Date: 20240606
  Receipt Date: 20240606
  Transmission Date: 20240716
  Serious: Yes (Other)
  Sender: FDA-Public Use
  Company Number: CN-JNJFOC-20240603086

PATIENT
  Age: 69 Year
  Sex: Male
  Weight: 65 kg

DRUGS (5)
  1. TOPAMAX [Suspect]
     Active Substance: TOPIRAMATE
     Indication: Dizziness
     Route: 048
     Dates: start: 20240429, end: 20240505
  2. TOPAMAX [Suspect]
     Active Substance: TOPIRAMATE
     Indication: Sleep disorder
  3. TOPAMAX [Suspect]
     Active Substance: TOPIRAMATE
     Indication: Hypertension
  4. TOPAMAX [Suspect]
     Active Substance: TOPIRAMATE
     Indication: Arterial insufficiency
  5. TOPAMAX [Suspect]
     Active Substance: TOPIRAMATE
     Indication: Ventricular extrasystoles

REACTIONS (2)
  - Unresponsive to stimuli [Recovering/Resolving]
  - Off label use [Unknown]

NARRATIVE: CASE EVENT DATE: 20240505
